FAERS Safety Report 13093882 (Version 1)
Quarter: 2017Q1

REPORT INFORMATION
  Report Type: Spontaneous
  Country: GB (occurrence: GB)
  Receive Date: 20170106
  Receipt Date: 20170106
  Transmission Date: 20170428
  Serious: Yes (Death)
  Sender: FDA-Public Use
  Company Number: GB-FRESENIUS KABI-FK201700067

PATIENT

DRUGS (2)
  1. CISPLATIN (MANUFACTURER UNKNOWN) [Suspect]
     Active Substance: CISPLATIN
     Indication: GASTRIC CANCER
     Route: 065
  2. EPIRUBICIN (MANUFACTURER UNKNOWN) [Suspect]
     Active Substance: EPIRUBICIN
     Indication: GASTRIC CANCER
     Route: 065

REACTIONS (1)
  - Pulmonary embolism [Fatal]
